FAERS Safety Report 5615061-1 (Version None)
Quarter: 2008Q1

REPORT INFORMATION
  Report Type: 
  Country: None (occurrence: None)
  Receive Date: 20080205
  Receipt Date: 20080205
  Transmission Date: 20080703
  Serious: No
  Sender: FDA-Public Use
  Company Number: None

PATIENT
  Age: 47 Year
  Sex: Female
  Weight: 61.2356 kg

DRUGS (2)
  1. ARIMIDEX [Suspect]
     Indication: BREAST CANCER
     Dosage: 1MG ONCE A DAY PO
     Route: 048
     Dates: start: 20071101, end: 20080201
  2. ARIMIDEX [Suspect]
     Indication: HORMONE THERAPY
     Dosage: 1MG ONCE A DAY PO
     Route: 048
     Dates: start: 20071101, end: 20080201

REACTIONS (7)
  - FEELING ABNORMAL [None]
  - HYPOAESTHESIA [None]
  - JOINT STIFFNESS [None]
  - MUSCULOSKELETAL STIFFNESS [None]
  - NERVOUS SYSTEM DISORDER [None]
  - PAIN [None]
  - PARAESTHESIA [None]
